FAERS Safety Report 13622601 (Version 1)
Quarter: 2017Q2

REPORT INFORMATION
  Report Type: Spontaneous
  Country: US (occurrence: US)
  Receive Date: 20170607
  Receipt Date: 20170607
  Transmission Date: 20170830
  Serious: No
  Sender: FDA-Public Use
  Company Number: US-ASTRAZENECA-2017SE58176

PATIENT
  Age: 25219 Day
  Sex: Female
  Weight: 85.3 kg

DRUGS (2)
  1. GENERIC FOR SYNTHROID [Concomitant]
     Indication: HYPOTHYROIDISM
     Dosage: 125, DAILY
     Route: 048
  2. PULMICORT FLEXHALER [Suspect]
     Active Substance: BUDESONIDE
     Indication: DYSPNOEA
     Dosage: 2 INHALATIONS, TWICE DAILY
     Route: 055
     Dates: start: 20170529, end: 20170529

REACTIONS (2)
  - Off label use [Unknown]
  - Hypoaesthesia [Recovered/Resolved]

NARRATIVE: CASE EVENT DATE: 20170529
